FAERS Safety Report 23022160 (Version 3)
Quarter: 2024Q1

REPORT INFORMATION
  Report Type: Other
  Country: CA (occurrence: None)
  Receive Date: 20231003
  Receipt Date: 20240313
  Transmission Date: 20240409
  Serious: No
  Sender: FDA-Public Use
  Company Number: CA-ROCHE-3432515

PATIENT
  Age: 61 Year
  Sex: Female

DRUGS (2)
  1. OCREVUS [Suspect]
     Active Substance: OCRELIZUMAB
     Indication: Relapsing-remitting multiple sclerosis
     Dosage: 300 MG AT DAY 0 AND 14, THEN 600 MG EVERY 6 MONTH
     Route: 042
     Dates: start: 20210929
  2. GABAPENTIN [Concomitant]
     Active Substance: GABAPENTIN

REACTIONS (10)
  - COVID-19 [Unknown]
  - Malaise [Recovered/Resolved]
  - Oropharyngeal pain [Recovered/Resolved]
  - Nasal congestion [Recovered/Resolved]
  - Cough [Not Recovered/Not Resolved]
  - Myalgia [Recovered/Resolved]
  - Restless legs syndrome [Recovering/Resolving]
  - Muscle spasms [Recovering/Resolving]
  - Insomnia [Recovering/Resolving]
  - Nasopharyngitis [Unknown]

NARRATIVE: CASE EVENT DATE: 20230917
